FAERS Safety Report 25847713 (Version 2)
Quarter: 2025Q4

REPORT INFORMATION
  Report Type: Spontaneous
  Country: CA (occurrence: CA)
  Receive Date: 20250925
  Receipt Date: 20251107
  Transmission Date: 20260117
  Serious: Yes (Death, Life-Threatening, Other)
  Sender: SANOFI AVENTIS
  Company Number: CA-SA-2025SA286947

PATIENT
  Age: 79 Year
  Sex: Male

DRUGS (14)
  1. KEVZARA [Suspect]
     Active Substance: SARILUMAB
     Indication: Polymyalgia rheumatica
     Dosage: 200 MG
     Route: 058
     Dates: start: 2021, end: 2023
  2. KEVZARA [Suspect]
     Active Substance: SARILUMAB
     Indication: Autoinflammatory disease
  3. METHOTREXATE [Suspect]
     Active Substance: METHOTREXATE
     Indication: Polymyalgia rheumatica
     Dosage: 25 MG
     Route: 058
     Dates: start: 2021, end: 2023
  4. METHOTREXATE [Suspect]
     Active Substance: METHOTREXATE
     Indication: Autoinflammatory disease
     Dosage: UNK
     Route: 058
  5. PREDNISONE [Suspect]
     Active Substance: PREDNISONE
     Indication: Polymyalgia rheumatica
     Dosage: 40 MG (TAPERED TO 15MG/D OR LOWER)
     Dates: start: 2023
  6. PREDNISONE [Suspect]
     Active Substance: PREDNISONE
     Indication: Autoinflammatory disease
     Dosage: 15 MG
  7. MYCOPHENOLATE MOFETIL [Suspect]
     Active Substance: MYCOPHENOLATE MOFETIL
     Indication: Polymyalgia rheumatica
     Dosage: 1.5 MG, Q12H
     Dates: start: 2021, end: 2023
  8. MYCOPHENOLATE MOFETIL [Suspect]
     Active Substance: MYCOPHENOLATE MOFETIL
     Indication: Autoinflammatory disease
     Dosage: UNK
  9. AZATHIOPRINE [Suspect]
     Active Substance: AZATHIOPRINE
     Indication: Autoinflammatory disease
     Dosage: UNK
  10. AZATHIOPRINE [Suspect]
     Active Substance: AZATHIOPRINE
     Indication: Polymyalgia rheumatica
     Dosage: 150 MG
     Dates: start: 2021, end: 2023
  11. CYCLOSPORINE [Suspect]
     Active Substance: CYCLOSPORINE
     Indication: Polymyalgia rheumatica
     Dosage: 2.5 MG/KG
     Dates: start: 2021, end: 2023
  12. CYCLOSPORINE [Suspect]
     Active Substance: CYCLOSPORINE
     Indication: Autoinflammatory disease
     Dosage: UNK
  13. TOFACITINIB [Suspect]
     Active Substance: TOFACITINIB
     Indication: Polymyalgia rheumatica
     Dosage: 5 MG, Q12H
  14. TOFACITINIB [Suspect]
     Active Substance: TOFACITINIB
     Indication: Autoinflammatory disease

REACTIONS (4)
  - Bacteraemia [Fatal]
  - COVID-19 pneumonia [Fatal]
  - Mycobacterium chelonae infection [Fatal]
  - Pneumonia [Fatal]
